FAERS Safety Report 9028866 (Version 2)
Quarter: 2013Q1

REPORT INFORMATION
  Report Type: Spontaneous
  Country: US (occurrence: US)
  Receive Date: 20130124
  Receipt Date: 20130128
  Transmission Date: 20140127
  Serious: Yes (Other)
  Sender: FDA-Public Use
  Company Number: US-ASTRAZENECA-2013SE03886

PATIENT
  Age: 68 Year
  Sex: Female
  Weight: 64.9 kg

DRUGS (2)
  1. NEXIUM [Suspect]
     Indication: BARRETT^S OESOPHAGUS
     Route: 048
  2. TRAMADOL APAP [Concomitant]
     Indication: ARTHRITIS
     Dosage: 7.5/325 MG, PRN
     Dates: start: 2012

REACTIONS (3)
  - Skin cancer [Unknown]
  - Hypertension [Unknown]
  - Pneumonia [Unknown]
